FAERS Safety Report 25239429 (Version 1)
Quarter: 2025Q2

REPORT INFORMATION
  Report Type: Spontaneous
  Country: CN (occurrence: CN)
  Receive Date: 20250425
  Receipt Date: 20250425
  Transmission Date: 20250717
  Serious: Yes (Life-Threatening)
  Sender: ASTELLAS
  Company Number: CN-ASTELLAS-2025-AER-023101

PATIENT
  Age: 53 Year
  Sex: Male
  Weight: 70 kg

DRUGS (2)
  1. ISAVUCONAZOLE [Suspect]
     Active Substance: ISAVUCONAZOLE
     Indication: Bronchopulmonary aspergillosis
     Dosage: TID
     Route: 042
     Dates: start: 20250403, end: 20250404
  2. ISAVUCONAZOLE [Suspect]
     Active Substance: ISAVUCONAZOLE
     Indication: Pneumonia

REACTIONS (8)
  - Jaundice [Recovering/Resolving]
  - Tachycardia [Recovering/Resolving]
  - Hypersensitivity [Recovering/Resolving]
  - Blood pressure increased [Recovering/Resolving]
  - Skin temperature decreased [Recovering/Resolving]
  - Cyanosis [Recovering/Resolving]
  - Tachypnoea [Recovering/Resolving]
  - Dyspnoea [Recovering/Resolving]

NARRATIVE: CASE EVENT DATE: 20250404
